FAERS Safety Report 25550011 (Version 1)
Quarter: 2025Q3

REPORT INFORMATION
  Report Type: Report from Study
  Country: CA (occurrence: CA)
  Receive Date: 20250714
  Receipt Date: 20250714
  Transmission Date: 20251020
  Serious: Yes (Other)
  Sender: TAKEDA
  Company Number: CA-TAKEDA-2025TUS057843

PATIENT
  Age: 60 Year
  Sex: Female

DRUGS (13)
  1. VEDOLIZUMAB [Suspect]
     Active Substance: VEDOLIZUMAB
     Indication: Colitis microscopic
  2. AZATHIOPRINE [Concomitant]
     Active Substance: AZATHIOPRINE
  3. MEDROXYPROGESTERONE ACETATE [Concomitant]
     Active Substance: MEDROXYPROGESTERONE ACETATE
  4. METOPROLOL [Concomitant]
     Active Substance: METOPROLOL
  5. BASAGLAR [Concomitant]
     Active Substance: INSULIN GLARGINE
  6. BETADERM [Concomitant]
     Active Substance: BETAMETHASONE VALERATE
  7. ENTOCORT [Concomitant]
     Active Substance: BUDESONIDE
  8. EZETIMIBE [Concomitant]
     Active Substance: EZETIMIBE
  9. CRESTOR [Concomitant]
     Active Substance: ROSUVASTATIN CALCIUM
  10. SERTRALINE [Concomitant]
     Active Substance: SERTRALINE HYDROCHLORIDE
  11. TRAZODONE [Concomitant]
     Active Substance: TRAZODONE HYDROCHLORIDE
  12. VAGIFEM [Concomitant]
     Active Substance: ESTRADIOL
  13. INSULIN ASPART [Concomitant]
     Active Substance: INSULIN ASPART

REACTIONS (3)
  - Neck pain [Unknown]
  - Musculoskeletal stiffness [Unknown]
  - Off label use [Unknown]

NARRATIVE: CASE EVENT DATE: 20250623
